FAERS Safety Report 6716460-7 (Version None)
Quarter: 2010Q2

REPORT INFORMATION
  Report Type: 
  Country: None (occurrence: None)
  Receive Date: 20100507
  Receipt Date: 20100428
  Transmission Date: 20101027
  Serious: Yes (Other)
  Sender: FDA-Public Use
  Company Number: US-MYLANLABS-2010S1000520

PATIENT
  Age: 30 Year
  Sex: Female

DRUGS (3)
  1. AMNESTEEM [Suspect]
     Route: 048
     Dates: start: 20080423, end: 20080801
  2. AMNESTEEM [Suspect]
     Route: 048
     Dates: start: 20090813, end: 20100101
  3. SOTRET [Suspect]
     Route: 048
     Dates: start: 20090813, end: 20090901

REACTIONS (2)
  - DRUG EXPOSURE DURING PREGNANCY [None]
  - VAGINAL HAEMORRHAGE [None]
